FAERS Safety Report 5183469-7 (Version None)
Quarter: 2006Q4

REPORT INFORMATION
  Report Type: 
  Country: None (occurrence: None)
  Receive Date: 20061220
  Receipt Date: 20060116
  Transmission Date: 20070319
  Serious: No
  Sender: FDA-Public Use
  Company Number: US-GLAXOSMITHKLINE-A0589342A

PATIENT
  Age: 20 Year
  Sex: Female

DRUGS (1)
  1. NICODERM CQ [Suspect]
     Dates: start: 20060115, end: 20060115

REACTIONS (4)
  - APPLICATION SITE PRURITUS [None]
  - HEADACHE [None]
  - INSOMNIA [None]
  - NAUSEA [None]
